FAERS Safety Report 6294488-1 (Version None)
Quarter: 2009Q3

REPORT INFORMATION
  Report Type: 
  Country: None (occurrence: None)
  Receive Date: 20090803
  Receipt Date: 20090724
  Transmission Date: 20100115
  Serious: Yes (Hospitalization)
  Sender: FDA-Public Use
  Company Number: JP-ASTRAZENECA-2009SE04447

PATIENT
  Age: 29778 Day
  Sex: Female
  Weight: 57 kg

DRUGS (9)
  1. BLOPRESS [Suspect]
     Indication: HYPERTENSION
     Route: 048
     Dates: start: 20080101
  2. BLOPRESS [Suspect]
     Route: 048
     Dates: end: 20090703
  3. BASEN [Concomitant]
     Indication: DIABETES MELLITUS
     Route: 048
  4. LOCHOL [Concomitant]
     Route: 048
  5. PAMILCON [Concomitant]
     Route: 048
  6. ALLOZYM [Concomitant]
     Indication: GOUT
     Route: 048
  7. AMLODIPINE [Concomitant]
     Indication: HYPERTENSION
     Route: 048
  8. DIBETOS [Concomitant]
     Route: 048
  9. GLYBURIDE [Concomitant]
     Route: 048

REACTIONS (3)
  - HYPERKALAEMIA [None]
  - HYPONATRAEMIA [None]
  - MALAISE [None]
